FAERS Safety Report 6163281-2 (Version None)
Quarter: 2009Q2

REPORT INFORMATION
  Report Type: 
  Country: None (occurrence: None)
  Receive Date: 20090422
  Receipt Date: 20090413
  Transmission Date: 20091009
  Serious: Yes (Hospitalization)
  Sender: FDA-Public Use
  Company Number: JP-BRISTOL-MYERS SQUIBB COMPANY-14448245

PATIENT
  Age: 53 Year
  Sex: Female
  Weight: 36 kg

DRUGS (5)
  1. ABILIFY [Suspect]
     Indication: SCHIZOPHRENIA, PARANOID TYPE
     Dosage: 08SEP-18SEP08(11D)6MG,19SEP-02OCT08(14D)12MG;03OCT-04NOV08(33DAYS)15MG;05NOV-26NOV08(22DAYS)12MG
     Route: 048
     Dates: start: 20080908, end: 20081126
  2. BIOFERMIN [Concomitant]
     Dosage: FORM=TABS
     Dates: start: 20080804, end: 20081118
  3. SLOW-K [Concomitant]
     Dosage: FORM=TABS
     Dates: start: 20080805, end: 20081107
  4. AMLODIN [Concomitant]
     Dosage: FORMULATION-TABLET
     Dates: start: 20080827, end: 20081118
  5. PURSENNID [Concomitant]
     Dosage: FORMULATION-TABS
     Dates: start: 20080912, end: 20081118

REACTIONS (1)
  - INAPPROPRIATE ANTIDIURETIC HORMONE SECRETION [None]
